FAERS Safety Report 8451464-8 (Version None)
Quarter: 2012Q2

REPORT INFORMATION
  Report Type: 
  Country: None (occurrence: None)
  Receive Date: 20120620
  Receipt Date: 20120311
  Transmission Date: 20120825
  Serious: No
  Sender: FDA-Public Use
  Company Number: US-VERTEX PHARMACEUTICALS INC.-AE-2012-003066

PATIENT
  Sex: Male
  Weight: 83.536 kg

DRUGS (4)
  1. PEGASYS [Concomitant]
     Route: 058
     Dates: start: 20120229
  2. PEGASYS [Concomitant]
     Indication: HEPATITIS C
     Route: 058
     Dates: start: 20120109
  3. INCIVEK [Suspect]
     Indication: HEPATITIS C
     Route: 048
     Dates: start: 20120109
  4. RIBAVIRIN [Concomitant]
     Indication: HEPATITIS C
     Route: 048
     Dates: start: 20120109

REACTIONS (9)
  - ANAEMIA [None]
  - PRURITUS [None]
  - WHITE BLOOD CELL COUNT DECREASED [None]
  - JOINT SWELLING [None]
  - FATIGUE [None]
  - DRY MOUTH [None]
  - TOOTH ABSCESS [None]
  - DYSPNOEA [None]
  - INCREASED UPPER AIRWAY SECRETION [None]
